FAERS Safety Report 10025969 (Version 1)
Quarter: 2014Q1

REPORT INFORMATION
  Report Type: Spontaneous
  Country: FR (occurrence: None)
  Receive Date: 20140318
  Receipt Date: 20140318
  Transmission Date: 20141002
  Serious: Yes (Other)
  Sender: FDA-Public Use
  Company Number: 2013RT000086

PATIENT
  Age: 47 Year
  Sex: Male

DRUGS (1)
  1. CYSTEAMINE BITARTRATE [Suspect]
     Indication: HUNTINGTON^S DISEASE
     Route: 048
     Dates: start: 20120825, end: 20130331

REACTIONS (1)
  - Completed suicide [None]
